FAERS Safety Report 12739303 (Version 1)
Quarter: 2016Q3

REPORT INFORMATION
  Report Type: Spontaneous
  Country: US (occurrence: US)
  Receive Date: 20160913
  Receipt Date: 20160913
  Transmission Date: 20161109
  Serious: No
  Sender: FDA-Public Use
  Company Number: None

PATIENT
  Weight: 53.52 kg

DRUGS (10)
  1. OMEGA-3 KRILL OIL [Concomitant]
  2. MULTI VITAMINS [Concomitant]
     Active Substance: VITAMINS
  3. PANTOPRAZOLE [Concomitant]
     Active Substance: PANTOPRAZOLE SODIUM
  4. MINOCYCLINE [Suspect]
     Active Substance: MINOCYCLINE\MINOCYCLINE HYDROCHLORIDE
     Indication: MYCOBACTERIAL INFECTION
     Dosage: 1 PILL TWICE DAILY MOUTH
     Route: 048
     Dates: start: 20150815, end: 20160801
  5. CALCIUM [Concomitant]
     Active Substance: CALCIUM
  6. MINOCYCLINE [Suspect]
     Active Substance: MINOCYCLINE\MINOCYCLINE HYDROCHLORIDE
     Indication: GASTROOESOPHAGEAL REFLUX DISEASE
     Dosage: 1 PILL TWICE DAILY MOUTH
     Route: 048
     Dates: start: 20150815, end: 20160801
  7. PROBIOTIC [Concomitant]
     Active Substance: PROBIOTICS NOS
  8. OCUVITE [Concomitant]
     Active Substance: VITAMINS
  9. MINOCYCLINE [Suspect]
     Active Substance: MINOCYCLINE\MINOCYCLINE HYDROCHLORIDE
     Indication: ARTHRITIS
     Dosage: 1 PILL TWICE DAILY MOUTH
     Route: 048
     Dates: start: 20150815, end: 20160801
  10. ZEAXANTHIN [Concomitant]
     Active Substance: ZEAXANTHIN

REACTIONS (1)
  - Contusion [None]

NARRATIVE: CASE EVENT DATE: 201512
